FAERS Safety Report 6752804-8 (Version None)
Quarter: 2010Q2

REPORT INFORMATION
  Report Type: 
  Country: None (occurrence: None)
  Receive Date: 20100603
  Receipt Date: 20100519
  Transmission Date: 20101027
  Serious: Yes (Hospitalization)
  Sender: FDA-Public Use
  Company Number: IR-MYLANLABS-2010S1008861

PATIENT
  Age: 42 Year
  Sex: Male
  Weight: 85 kg

DRUGS (3)
  1. CREATINE [Suspect]
     Dosage: CREATINE MONOHYDRATE WAS INITIATED AT 5G FOUR TIMES A DAY THEN CHANGED TO 5 G/DAY.
     Route: 048
  2. CREATINE [Suspect]
     Dosage: CREATINE MONOHYDRATE WAS INITIATED AT 5G FOUR TIMES A DAY THEN CHANGED TO 5 G/DAY.
     Route: 048
  3. METFORMIN HCL [Suspect]
     Indication: DIABETES MELLITUS
     Route: 065

REACTIONS (2)
  - LACTIC ACIDOSIS [None]
  - RENAL FAILURE ACUTE [None]
